FAERS Safety Report 5904629-0 (Version None)
Quarter: 2008Q4

REPORT INFORMATION
  Report Type: 
  Country: None (occurrence: None)
  Receive Date: 20081001
  Receipt Date: 20080925
  Transmission Date: 20090506
  Serious: Yes (Death, Hospitalization)
  Sender: FDA-Public Use
  Company Number: PHHO1996FR03136

PATIENT
  Sex: Male
  Weight: 56 kg

DRUGS (7)
  1. SANDIMMUNE [Suspect]
     Route: 048
     Dates: start: 19960613, end: 19960909
  2. CORDARONE [Concomitant]
     Dosage: UNSPECIFIED
     Route: 042
     Dates: start: 19960908, end: 19960909
  3. XYLOCAINE [Concomitant]
     Dosage: UNSPECIFIED
     Route: 042
     Dates: start: 19960908, end: 19960908
  4. SOLU-MEDROL [Concomitant]
     Dosage: UNSPECIFIED
     Route: 042
     Dates: start: 19960908, end: 19960909
  5. CYMEVAN [Concomitant]
     Dosage: UNSPECIFIED
     Route: 042
     Dates: start: 19960908, end: 19960909
  6. BACTRIM [Concomitant]
     Dosage: UNSPECIFIED
     Route: 048
     Dates: start: 19960909, end: 19960909
  7. CALCIPARINE [Concomitant]
     Dosage: UNSPECIFIED
     Route: 058
     Dates: start: 19960909, end: 19960909

REACTIONS (5)
  - ARRHYTHMIA [None]
  - CONVULSION [None]
  - CYTOMEGALOVIRUS INFECTION [None]
  - DEATH [None]
  - TRANSPLANT REJECTION [None]
